FAERS Safety Report 21508342 (Version 2)
Quarter: 2023Q4

REPORT INFORMATION
  Report Type: Spontaneous
  Country: US (occurrence: US)
  Receive Date: 20221026
  Receipt Date: 20231214
  Transmission Date: 20240109
  Serious: Yes (Hospitalization)
  Sender: FDA-Public Use
  Company Number: US-MYLANLABS-2022M1118039

PATIENT
  Age: 56 Year
  Sex: Male

DRUGS (14)
  1. ARIPIPRAZOLE [Suspect]
     Active Substance: ARIPIPRAZOLE
     Indication: Agitation
     Dosage: 5 MILLIGRAM, QD
     Route: 065
  2. ARIPIPRAZOLE [Suspect]
     Active Substance: ARIPIPRAZOLE
     Indication: Psychomotor hyperactivity
     Dosage: 10 MILLIGRAM, QD
     Route: 065
  3. ARIPIPRAZOLE [Suspect]
     Active Substance: ARIPIPRAZOLE
     Indication: Confusional state
  4. ARIPIPRAZOLE [Suspect]
     Active Substance: ARIPIPRAZOLE
     Indication: Impulsive behaviour
  5. QUETIAPINE [Suspect]
     Active Substance: QUETIAPINE
     Indication: Agitation
     Dosage: UNK
     Route: 065
  6. VITAMIN B12 [Concomitant]
     Active Substance: CYANOCOBALAMIN
     Indication: Supplementation therapy
     Dosage: UNK
     Route: 065
  7. VITAMIN B12 [Concomitant]
     Active Substance: CYANOCOBALAMIN
     Indication: Alcohol use disorder
  8. VITAMIN B12 [Concomitant]
     Active Substance: CYANOCOBALAMIN
     Indication: Anaemia macrocytic
  9. FOLATE SODIUM [Concomitant]
     Active Substance: FOLATE SODIUM
     Indication: Supplementation therapy
     Dosage: UNK
     Route: 065
  10. FOLATE SODIUM [Concomitant]
     Active Substance: FOLATE SODIUM
     Indication: Alcohol use disorder
  11. FOLATE SODIUM [Concomitant]
     Active Substance: FOLATE SODIUM
     Indication: Anaemia macrocytic
  12. THIAMINE [Concomitant]
     Active Substance: THIAMINE
     Indication: Supplementation therapy
     Dosage: UNK
     Route: 065
  13. THIAMINE [Concomitant]
     Active Substance: THIAMINE
     Indication: Alcohol use disorder
  14. THIAMINE [Concomitant]
     Active Substance: THIAMINE
     Indication: Anaemia macrocytic

REACTIONS (7)
  - Hypothermia [Recovered/Resolved]
  - Confusional state [Unknown]
  - Dysarthria [Unknown]
  - Hallucination, visual [Unknown]
  - Hyporeflexia [Unknown]
  - Hypothyroidism [Unknown]
  - Off label use [Unknown]
